FAERS Safety Report 7421587-0 (Version None)
Quarter: 2011Q2

REPORT INFORMATION
  Report Type: 
  Country: None (occurrence: None)
  Receive Date: 20110418
  Receipt Date: 20110411
  Transmission Date: 20111010
  Serious: Yes (Other)
  Sender: FDA-Public Use
  Company Number: CHPA2011US05262

PATIENT
  Sex: Male

DRUGS (3)
  1. DRUG THERAPY NOS [Suspect]
     Dosage: UNK, UNK
     Route: 048
  2. DAYQUIL ^FOX^ [Suspect]
     Dosage: WHOLE BOTTLE OVER A FEW DAYS
     Route: 048
  3. THERAFLU FLU AND SORE THROAT [Suspect]
     Dosage: WHOLE BOTTLE IN 2 DAYS
     Route: 048

REACTIONS (2)
  - OVERDOSE [None]
  - HAEMOPTYSIS [None]
